FAERS Safety Report 5674821-1 (Version None)
Quarter: 2008Q1

REPORT INFORMATION
  Report Type: 
  Country: None (occurrence: None)
  Receive Date: 20080320
  Receipt Date: 20080310
  Transmission Date: 20080703
  Serious: Yes (Other)
  Sender: FDA-Public Use
  Company Number: US-ELI_LILLY_AND_COMPANY-US200803002339

PATIENT
  Sex: Female

DRUGS (4)
  1. BYETTA [Suspect]
     Indication: TYPE 2 DIABETES MELLITUS
     Dosage: 10 UG, 2/D
     Route: 058
     Dates: start: 20070601, end: 20080306
  2. METFORMIN HCL [Concomitant]
  3. ACTOS [Concomitant]
  4. GLUCOTROL [Concomitant]

REACTIONS (2)
  - PANCREATITIS ACUTE [None]
  - RENAL FAILURE ACUTE [None]
